FAERS Safety Report 11893895 (Version 4)
Quarter: 2016Q1

REPORT INFORMATION
  Report Type: Report from Study
  Country: DE (occurrence: DE)
  Receive Date: 20160107
  Receipt Date: 20160225
  Transmission Date: 20160526
  Serious: No
  Sender: FDA-Public Use
  Company Number: DE-ROCHE-1599752

PATIENT
  Age: 60 Year
  Sex: Female

DRUGS (4)
  1. PREDNISOLON [Concomitant]
     Active Substance: PREDNISOLONE
     Indication: RHEUMATOID ARTHRITIS
     Dosage: 5-7.5 MG, ALTERNATING DAILY 5 MG, NEXT DAY 7.5 MG
     Route: 048
     Dates: start: 1996
  2. VIGANTOLETTEN [Concomitant]
     Active Substance: CHOLECALCIFEROL
  3. ROACTEMRA [Suspect]
     Active Substance: TOCILIZUMAB
     Indication: RHEUMATOID ARTHRITIS
     Route: 058
     Dates: start: 20150615, end: 20160112
  4. CELEBREX [Concomitant]
     Active Substance: CELECOXIB
     Dosage: AS REQUIRED
     Route: 065

REACTIONS (7)
  - Blood glucose increased [Not Recovered/Not Resolved]
  - Tremor [Unknown]
  - Toothache [Not Recovered/Not Resolved]
  - Wound haemorrhage [Not Recovered/Not Resolved]
  - Abdominal pain upper [Not Recovered/Not Resolved]
  - Paraesthesia [Not Recovered/Not Resolved]
  - Gingival bleeding [Recovered/Resolved]

NARRATIVE: CASE EVENT DATE: 20150615
